FAERS Safety Report 11319191 (Version 2)
Quarter: 2015Q3

REPORT INFORMATION
  Report Type: Spontaneous
  Country: AT (occurrence: AT)
  Receive Date: 20150729
  Receipt Date: 20150805
  Transmission Date: 20151125
  Serious: Yes (Other)
  Sender: FDA-Public Use
  Company Number: AT-AMGEN-AUTSP2015074014

PATIENT
  Age: 60 Year
  Sex: Female

DRUGS (1)
  1. PROLIA [Suspect]
     Active Substance: DENOSUMAB
     Indication: PRODUCT USED FOR UNKNOWN INDICATION
     Dosage: UNK
     Route: 065

REACTIONS (8)
  - Pain in extremity [Unknown]
  - Hypoaesthesia [Unknown]
  - Cataract [Unknown]
  - Diverticulitis [Unknown]
  - Pain [Unknown]
  - Musculoskeletal chest pain [Unknown]
  - Colitis [Unknown]
  - Abdominal pain [Unknown]
